FAERS Safety Report 7118487-2 (Version None)
Quarter: 2010Q4

REPORT INFORMATION
  Report Type: 
  Country: None (occurrence: None)
  Receive Date: 20101123
  Receipt Date: 20101112
  Transmission Date: 20110411
  Serious: Yes (Other)
  Sender: FDA-Public Use
  Company Number: JP-CELGENEUS-087-21880-10111717

PATIENT
  Sex: Female

DRUGS (14)
  1. REVLIMID [Suspect]
     Indication: MULTIPLE MYELOMA
     Route: 048
     Dates: start: 20100901, end: 20100914
  2. LENADEX [Suspect]
     Indication: MULTIPLE MYELOMA
     Route: 048
     Dates: start: 20100902, end: 20100905
  3. LENADEX [Suspect]
     Route: 048
     Dates: start: 20100911, end: 20100914
  4. ZOMETA [Suspect]
     Route: 041
     Dates: start: 20100825, end: 20100825
  5. ZOMETA [Suspect]
     Route: 041
     Dates: start: 20100929, end: 20100929
  6. SIGMART [Concomitant]
     Indication: ANGINA PECTORIS
     Route: 048
     Dates: start: 20100602, end: 20100928
  7. CONIEL [Concomitant]
     Indication: HYPERTENSION
     Route: 048
     Dates: start: 20090518, end: 20100928
  8. DIOVAN [Concomitant]
     Indication: HYPERTENSION
     Route: 048
     Dates: start: 20100928, end: 20101028
  9. URSO 250 [Concomitant]
     Route: 048
     Dates: start: 20090518, end: 20100928
  10. PARIET [Concomitant]
     Indication: PROPHYLAXIS
     Route: 048
     Dates: start: 20090518, end: 20100928
  11. MAGMITT [Concomitant]
     Route: 048
     Dates: start: 20090518, end: 20100928
  12. BIOFERMIN [Concomitant]
     Route: 048
     Dates: start: 20100928, end: 20101028
  13. PURSENNID [Concomitant]
     Route: 048
     Dates: start: 20090722, end: 20100928
  14. HUSTAZOL [Concomitant]
     Route: 048
     Dates: start: 20100714, end: 20100928

REACTIONS (8)
  - BLOOD BILIRUBIN INCREASED [None]
  - BLOOD LACTATE DEHYDROGENASE INCREASED [None]
  - C-REACTIVE PROTEIN INCREASED [None]
  - CONDITION AGGRAVATED [None]
  - HYPOALBUMINAEMIA [None]
  - HYPOCALCAEMIA [None]
  - NEUTROPHIL COUNT DECREASED [None]
  - PLATELET COUNT DECREASED [None]
